FAERS Safety Report 9499771 (Version 11)
Quarter: 2014Q2

REPORT INFORMATION
  Report Type: Spontaneous
  Country: US (occurrence: US)
  Receive Date: 20130905
  Receipt Date: 20140530
  Transmission Date: 20141212
  Serious: Yes (Other)
  Sender: FDA-Public Use
  Company Number: US-JNJFOC-20130816688

PATIENT
  Sex: Female
  Weight: 52.16 kg

DRUGS (12)
  1. XARELTO [Suspect]
     Indication: CARDIAC DISORDER
     Route: 048
     Dates: start: 20121009, end: 201212
  2. ATENOLOL [Concomitant]
     Indication: CARDIAC DISORDER
     Dosage: ONCE IN MORNING AND A NIGHT
     Route: 048
     Dates: start: 1998
  3. ATENOLOL [Concomitant]
     Indication: HYPERTENSION
     Dosage: ONCE IN MORNING AND A NIGHT
     Route: 048
     Dates: start: 1998
  4. AMLODIPINE [Concomitant]
     Indication: CARDIAC DISORDER
     Route: 048
     Dates: start: 2003
  5. AMLODIPINE [Concomitant]
     Indication: HYPERTENSION
     Route: 048
     Dates: start: 2003
  6. FOLIC ACID [Concomitant]
     Indication: CARDIAC DISORDER
     Route: 048
     Dates: start: 2005
  7. FAMOTIDINE [Concomitant]
     Indication: DYSPEPSIA
     Route: 048
     Dates: start: 2011
  8. LORAZEPAM [Concomitant]
     Route: 065
     Dates: start: 1999
  9. PANTOPRAZOLE [Concomitant]
     Route: 065
     Dates: start: 2010
  10. LORATYN [Concomitant]
     Route: 065
     Dates: start: 2013
  11. ASPIRIN [Concomitant]
     Indication: HYPERTENSION
     Route: 048
     Dates: start: 201212
  12. BABY ASPIRIN [Concomitant]
     Indication: CARDIAC DISORDER
     Route: 048
     Dates: start: 201212

REACTIONS (11)
  - Aortic aneurysm [Not Recovered/Not Resolved]
  - Hepatic enzyme increased [Unknown]
  - Hepatic haemorrhage [Unknown]
  - Hepatic cancer [Unknown]
  - Haemorrhage [Unknown]
  - Malaise [Unknown]
  - Weight increased [Not Recovered/Not Resolved]
  - Weight decreased [Recovered/Resolved]
  - Body height decreased [Not Recovered/Not Resolved]
  - Hearing impaired [Not Recovered/Not Resolved]
  - Feeling abnormal [Not Recovered/Not Resolved]
